FAERS Safety Report 8948694 (Version 1)
Quarter: 2012Q4

REPORT INFORMATION
  Report Type: 
  Country: CN (occurrence: CN)
  Receive Date: 20121206
  Receipt Date: 20121206
  Transmission Date: 20130627
  Serious: Yes (Death)
  Sender: FDA-Public Use
  Company Number: CN-BAYER-2012-127443

PATIENT
  Age: 57 Year
  Sex: Male
  Weight: 69.84 kg

DRUGS (6)
  1. BAYASPIRIN [Suspect]
     Indication: PLATELET AGGREGATION NOS
     Dosage: 100 mg, QD
     Route: 048
     Dates: start: 20080930, end: 20081007
  2. ERIGERON BREVISCAPUS [Concomitant]
     Dosage: 135 mg, QD
     Route: 041
     Dates: start: 20081001, end: 20081008
  3. SHUXUETONG (CHINESE TRADITIONAL DRUG) [Concomitant]
     Indication: UNEVALUABLE EVENT
     Dosage: 4 ml, QD
     Route: 041
     Dates: start: 20081001, end: 20081007
  4. HEPARIN CALCIUM [Concomitant]
     Indication: PLATELET AGGREGATION NOS
     Dosage: 4100 u, BID
     Route: 058
     Dates: start: 20080930, end: 20081007
  5. ALPROSTADIL [Concomitant]
     Indication: UNEVALUABLE EVENT
     Dosage: 10 ?g, QD
     Route: 041
     Dates: start: 20080930, end: 20081007
  6. SEVEN SODIUM SAPONIN [Concomitant]
     Indication: EFFUSION
     Dosage: 10 mg, BID
     Route: 041
     Dates: start: 20080930, end: 20081007

REACTIONS (1)
  - Cerebral haemorrhage [Fatal]
